FAERS Safety Report 25401702 (Version 1)
Quarter: 2025Q2

REPORT INFORMATION
  Report Type: Report from Study
  Country: US (occurrence: US)
  Receive Date: 20250605
  Receipt Date: 20250605
  Transmission Date: 20250717
  Serious: Yes (Other)
  Sender: ALNYLAM PHARMACEUTICALS
  Company Number: US-ALNYLAM PHARMACEUTICALS, INC.-ALN-2025-001994

PATIENT

DRUGS (1)
  1. AMVUTTRA [Suspect]
     Active Substance: VUTRISIRAN
     Indication: Hereditary neuropathic amyloidosis
     Route: 065
     Dates: start: 20230119, end: 20230119

REACTIONS (5)
  - Secondary amyloidosis [Unknown]
  - Chest discomfort [Unknown]
  - Blood pressure decreased [Unknown]
  - Dyspnoea [Unknown]
  - Injection site pain [Unknown]
